FAERS Safety Report 15353175 (Version 1)
Quarter: 2018Q3

REPORT INFORMATION
  Report Type: Spontaneous
  Country: US (occurrence: US)
  Receive Date: 20180905
  Receipt Date: 20180905
  Transmission Date: 20181010
  Serious: No
  Sender: FDA-Public Use
  Company Number: US-LYNE LABORATORIES INC.-2054647

PATIENT
  Sex: Female

DRUGS (1)
  1. LEVOCARNITINE. [Suspect]
     Active Substance: LEVOCARNITINE
     Route: 048

REACTIONS (1)
  - Seizure [Recovered/Resolved]
